FAERS Safety Report 6643984-3 (Version None)
Quarter: 2010Q1

REPORT INFORMATION
  Report Type: 
  Country: None (occurrence: None)
  Receive Date: 20100318
  Receipt Date: 20100318
  Transmission Date: 20100710
  Serious: Yes (Hospitalization)
  Sender: FDA-Public Use
  Company Number: None

PATIENT
  Sex: Female
  Weight: 43.2 kg

DRUGS (12)
  1. PEMETREXED [Suspect]
     Indication: NON-SMALL CELL LUNG CANCER
     Dosage: 400MG/M2 IV Q2 WEEKS
     Route: 042
     Dates: start: 20100129, end: 20100222
  2. GEMCITABINE HCL [Suspect]
     Indication: NON-SMALL CELL LUNG CANCER
     Dosage: 1200MG/M2 Q2 WEEKS
     Dates: start: 20100129, end: 20100222
  3. AVASTIN [Suspect]
     Indication: NON-SMALL CELL LUNG CANCER
     Dosage: 10MG/KG Q2 WEEKS
     Dates: start: 20100129, end: 20100222
  4. VITAMIN B COMPLEX TAB [Concomitant]
  5. MSSR [Concomitant]
  6. MORPHINE SULFATE [Concomitant]
  7. COMPAZINE [Concomitant]
  8. FOLIC ACID [Concomitant]
  9. DOCUSATE [Concomitant]
  10. SENNA [Concomitant]
  11. XANAX [Concomitant]
  12. FONDAPARINUX SODIUM [Concomitant]

REACTIONS (1)
  - MUSCULOSKELETAL CHEST PAIN [None]
